FAERS Safety Report 17365373 (Version 5)
Quarter: 2022Q2

REPORT INFORMATION
  Report Type: Report from Study
  Country: US (occurrence: US)
  Receive Date: 20200204
  Receipt Date: 20220422
  Transmission Date: 20220721
  Serious: No
  Sender: FDA-Public Use
  Company Number: NVSC2020US027490

PATIENT
  Age: 4 Year
  Sex: Female

DRUGS (3)
  1. ILARIS [Suspect]
     Active Substance: CANAKINUMAB
     Indication: Autoinflammatory disease
     Dosage: 45 MG, Q4 WEEKS
     Route: 058
     Dates: start: 20200106
  2. ILARIS [Suspect]
     Active Substance: CANAKINUMAB
     Dosage: 45 MG, QMO
     Route: 058
  3. ILARIS [Suspect]
     Active Substance: CANAKINUMAB
     Dosage: 45 MG, QMO
     Route: 058
     Dates: start: 20200401

REACTIONS (12)
  - Crying [Unknown]
  - Feeling abnormal [Unknown]
  - Illness [Unknown]
  - Inappropriate schedule of product administration [Unknown]
  - Product dose omission issue [Unknown]
  - Arthralgia [Not Recovered/Not Resolved]
  - Ocular discomfort [Not Recovered/Not Resolved]
  - Decreased appetite [Not Recovered/Not Resolved]
  - Emotional disorder [Not Recovered/Not Resolved]
  - Balance disorder [Not Recovered/Not Resolved]
  - COVID-19 [Unknown]
  - Arthritis [Unknown]

NARRATIVE: CASE EVENT DATE: 20210808
